FAERS Safety Report 9281291 (Version 1)
Quarter: 2013Q2

REPORT INFORMATION
  Report Type: Spontaneous
  Country: US (occurrence: None)
  Receive Date: 20130502
  Receipt Date: 20130502
  Transmission Date: 20140414
  Serious: Yes (Disabling)
  Sender: FDA-Public Use
  Company Number: 201304000114

PATIENT
  Sex: 0

DRUGS (1)
  1. INOMAX [Suspect]
     Indication: CONGENITAL DIAPHRAGMATIC HERNIA
     Route: 055

REACTIONS (1)
  - Cognitive disorder [None]
